FAERS Safety Report 17191745 (Version 1)
Quarter: 2020Q1

REPORT INFORMATION
  Report Type: Spontaneous
  Country: US (occurrence: US)
  Receive Date: 20191222
  Receipt Date: 20191222
  Transmission Date: 20200409
  Serious: Yes (Other)
  Sender: FDA-Public Use
  Company Number: None

PATIENT
  Age: 4 Year
  Sex: Male
  Weight: 14.4 kg

DRUGS (4)
  1. OSELTAMIVIR PHOSPHATE FOR ORAL SUSPENSION [Suspect]
     Active Substance: OSELTAMIVIR PHOSPHATE
     Indication: INFLUENZA
     Dosage: ?          QUANTITY:7.5 ML;?
     Route: 048
     Dates: start: 20191220, end: 20191220
  2. RANITIDINE. [Concomitant]
     Active Substance: RANITIDINE
  3. GUMMY MULTIVITAMIN [Concomitant]
  4. IRON TABLE WITH VITAMIN C [Concomitant]

REACTIONS (8)
  - Nausea [None]
  - Delirium [None]
  - Fear [None]
  - Vomiting [None]
  - Screaming [None]
  - Confusional state [None]
  - Hallucination [None]
  - Eye movement disorder [None]

NARRATIVE: CASE EVENT DATE: 20191220
